FAERS Safety Report 14369475 (Version 1)
Quarter: 2018Q1

REPORT INFORMATION
  Report Type: Spontaneous
  Country: US (occurrence: US)
  Receive Date: 20180110
  Receipt Date: 20180110
  Transmission Date: 20180509
  Serious: No
  Sender: FDA-Public Use
  Company Number: US-DRREDDYS-USA/USA/17/0088143

PATIENT
  Age: 73 Year
  Sex: Male
  Weight: 84.82 kg

DRUGS (4)
  1. NICOTINE. [Suspect]
     Active Substance: NICOTINE
     Route: 061
     Dates: start: 2016
  2. NICOTINE. [Suspect]
     Active Substance: NICOTINE
     Route: 061
     Dates: start: 20170317
  3. NICOTINE. [Suspect]
     Active Substance: NICOTINE
     Route: 061
     Dates: start: 2016
  4. NICOTINE. [Suspect]
     Active Substance: NICOTINE
     Indication: SMOKING CESSATION THERAPY
     Route: 061
     Dates: start: 2016

REACTIONS (3)
  - Drug ineffective [Unknown]
  - Product quality issue [Unknown]
  - Abnormal dreams [Unknown]
